FAERS Safety Report 5064852-7 (Version None)
Quarter: 2006Q3

REPORT INFORMATION
  Report Type: 
  Country: None (occurrence: None)
  Receive Date: 20060725
  Receipt Date: 20060706
  Transmission Date: 20061208
  Serious: Yes (Hospitalization, Other)
  Sender: FDA-Public Use
  Company Number: US200511000042

PATIENT
  Age: 54 Year
  Sex: Female
  Weight: 90.7 kg

DRUGS (4)
  1. CYMBALTA [Suspect]
     Indication: DEPRESSION
     Dosage: 60 MG, DAILY (1/D), ORAL
     Route: 048
     Dates: start: 20050815, end: 20051006
  2. PROZAC [Suspect]
     Indication: DEPRESSION
  3. LIPITOR [Concomitant]
  4. ASPARTAME (ASPARTAME) [Concomitant]

REACTIONS (10)
  - AGITATION [None]
  - AMNESIA [None]
  - ANTICONVULSANT DRUG LEVEL BELOW THERAPEUTIC [None]
  - ANXIETY [None]
  - CONFUSIONAL STATE [None]
  - DRUG INEFFECTIVE [None]
  - HYPERTENSION [None]
  - MENINGIOMA BENIGN [None]
  - NERVOUSNESS [None]
  - TEMPORAL LOBE EPILEPSY [None]
